FAERS Safety Report 5802063-5 (Version None)
Quarter: 2008Q3

REPORT INFORMATION
  Report Type: 
  Country: None (occurrence: None)
  Receive Date: 20080707
  Receipt Date: 20080623
  Transmission Date: 20090109
  Serious: Yes (Hospitalization)
  Sender: FDA-Public Use
  Company Number: PHHY2008FR12223

PATIENT
  Sex: Female

DRUGS (10)
  1. NEORAL [Suspect]
     Indication: NEPHROTIC SYNDROME
     Dosage: 75 MG, BID
     Route: 048
     Dates: start: 20080401, end: 20080503
  2. TAHOR [Interacting]
     Dosage: 10 MG, QD
     Route: 048
     Dates: end: 20080503
  3. KAYEXALATE [Interacting]
     Dosage: 1 DF, QD
     Route: 048
     Dates: end: 20080503
  4. COLCHIMAX [Interacting]
     Indication: ARTHRALGIA
     Dosage: 1 DF, QD
     Route: 048
     Dates: start: 20080424, end: 20080503
  5. COLCHIMAX [Interacting]
     Indication: GOUTY TOPHUS
  6. COLCHIMAX [Interacting]
     Indication: CONGENITAL HAND MALFORMATION
  7. ZOLPIDEM TARTRATE [Concomitant]
  8. DEDROGYL [Concomitant]
  9. LASIX [Concomitant]
  10. HYZAAR [Concomitant]

REACTIONS (16)
  - BLINDNESS [None]
  - BLOOD CREATINE PHOSPHOKINASE INCREASED [None]
  - BLOOD CREATININE INCREASED [None]
  - CONFUSIONAL STATE [None]
  - DIARRHOEA [None]
  - FLUID REPLACEMENT [None]
  - GLASGOW COMA SCALE [None]
  - HYPOCALCAEMIA [None]
  - HYPOKALAEMIA [None]
  - HYPONATRAEMIA [None]
  - LEUKOPENIA [None]
  - MYOGLOBIN BLOOD INCREASED [None]
  - NAUSEA [None]
  - RENAL FAILURE [None]
  - RHABDOMYOLYSIS [None]
  - VOMITING [None]
